FAERS Safety Report 17165832 (Version 2)
Quarter: 2019Q4

REPORT INFORMATION
  Report Type: Spontaneous
  Country: ES (occurrence: ES)
  Receive Date: 20191217
  Receipt Date: 20191225
  Transmission Date: 20200122
  Serious: Yes (Death, Hospitalization)
  Sender: FDA-Public Use
  Company Number: ES-ASTRAZENECA-2019SF81560

PATIENT
  Age: 3 Month
  Sex: Female
  Weight: 5.7 kg

DRUGS (4)
  1. SYNAGIS [Suspect]
     Active Substance: PALIVIZUMAB
     Indication: TRISOMY 21
     Route: 030
     Dates: start: 20191114, end: 20191114
  2. SYNAGIS [Suspect]
     Active Substance: PALIVIZUMAB
     Indication: CARDIOMYOPATHY
     Route: 030
     Dates: start: 2019, end: 2019
  3. SYNAGIS [Suspect]
     Active Substance: PALIVIZUMAB
     Indication: CARDIOMYOPATHY
     Route: 030
     Dates: start: 20191114, end: 20191114
  4. SYNAGIS [Suspect]
     Active Substance: PALIVIZUMAB
     Indication: TRISOMY 21
     Route: 030
     Dates: start: 2019, end: 2019

REACTIONS (28)
  - Arthropathy [Unknown]
  - Erythema [Unknown]
  - Procalcitonin increased [Unknown]
  - Use of accessory respiratory muscles [Unknown]
  - Pyrexia [Recovered/Resolved]
  - Tachypnoea [Recovering/Resolving]
  - Cardiomegaly [Unknown]
  - Pallor [Unknown]
  - Pulmonary oedema [Unknown]
  - Diarrhoea [Unknown]
  - Hypotonia [Unknown]
  - Bronchial wall thickening [Unknown]
  - Joint injury [Unknown]
  - Oedema peripheral [Unknown]
  - Extravasation [Unknown]
  - Hypertonia [Unknown]
  - Cardiovascular disorder [Fatal]
  - Respiratory distress [Unknown]
  - Cyanosis [Unknown]
  - General physical health deterioration [Unknown]
  - Hepatomegaly [Unknown]
  - Atelectasis [Unknown]
  - Vomiting [Unknown]
  - Ventricular failure [Unknown]
  - Joint warmth [Unknown]
  - Product use in unapproved indication [Unknown]
  - Cardiac failure [Unknown]
  - Hyperkalaemia [Unknown]

NARRATIVE: CASE EVENT DATE: 2019
